FAERS Safety Report 6133830-9 (Version None)
Quarter: 2009Q1

REPORT INFORMATION
  Report Type: 
  Country: None (occurrence: None)
  Receive Date: 20090326
  Receipt Date: 20090318
  Transmission Date: 20090719
  Serious: Yes (Hospitalization)
  Sender: FDA-Public Use
  Company Number: US-AMGEN-QUU339049

PATIENT
  Sex: Male

DRUGS (2)
  1. ENBREL [Suspect]
     Indication: PSORIATIC ARTHROPATHY
     Route: 058
     Dates: start: 19990901
  2. METHOTREXATE [Concomitant]
     Route: 048

REACTIONS (7)
  - ABDOMINAL HERNIA [None]
  - AORTIC VALVE REPLACEMENT [None]
  - APPENDICECTOMY [None]
  - CHOLECYSTECTOMY [None]
  - FATIGUE [None]
  - PSORIATIC ARTHROPATHY [None]
  - SHOULDER ARTHROPLASTY [None]
